FAERS Safety Report 9640320 (Version 2)
Quarter: 2013Q4

REPORT INFORMATION
  Report Type: Report from Study
  Country: CA (occurrence: CA)
  Receive Date: 20131023
  Receipt Date: 20131023
  Transmission Date: 20140711
  Serious: Yes (Life-Threatening, Hospitalization, Other)
  Sender: FDA-Public Use
  Company Number: CA-UCBSA-088239

PATIENT
  Age: 71 Year
  Sex: Female
  Weight: 52.2 kg

DRUGS (5)
  1. CIMZIA [Suspect]
     Indication: RHEUMATOID ARTHRITIS
     Route: 058
     Dates: start: 20110602, end: 201305
  2. CIMZIA [Suspect]
     Indication: RHEUMATOID ARTHRITIS
     Route: 058
     Dates: start: 20110407, end: 20110505
  3. PINDOLOL [Concomitant]
     Indication: HYPERTENSION
     Route: 048
  4. NECTA [Concomitant]
  5. PREVACID [Concomitant]
     Dosage: DOSE PER INTAKE: 1 1/2 TABLET
     Route: 048

REACTIONS (2)
  - Oesophageal carcinoma [Not Recovered/Not Resolved]
  - Gastric disorder [Not Recovered/Not Resolved]
